FAERS Safety Report 5234333-6 (Version None)
Quarter: 2007Q1

REPORT INFORMATION
  Report Type: 
  Country: None (occurrence: None)
  Receive Date: 20070207
  Receipt Date: 20070131
  Transmission Date: 20070707
  Serious: Yes (Hospitalization)
  Sender: FDA-Public Use
  Company Number: 30854

PATIENT
  Age: 49 Year
  Sex: Male
  Weight: 124 kg

DRUGS (13)
  1. TAMBOCOR [Suspect]
     Indication: ATRIAL FIBRILLATION
     Dosage: 50 MG, 2 IN 1 DAY (S), ORAL; 100 MG, 2 IN 1 DAY (S)), ORAL
     Route: 048
     Dates: start: 20070122, end: 20070126
  2. TAMBOCOR [Suspect]
     Indication: ATRIAL FIBRILLATION
     Dosage: 50 MG, 2 IN 1 DAY (S), ORAL; 100 MG, 2 IN 1 DAY (S)), ORAL
     Route: 048
     Dates: start: 20070126, end: 20070128
  3. CARDIZEM [Suspect]
     Dates: start: 20070122, end: 20070122
  4. COUMADIN [Suspect]
  5. LISINOPRIL [Suspect]
  6. FLOMAX [Suspect]
  7. DICLOFENAC SODIUM [Suspect]
  8. RANITIDINE [Suspect]
  9. CLONAPIN [Suspect]
  10. AMBIEN [Suspect]
  11. DIGOXIN [Suspect]
  12. PROCAINAMIDE [Suspect]
     Dates: start: 20070122, end: 20070122
  13. UNSPECIFIED NEBULIZED SOLUTION [Concomitant]

REACTIONS (7)
  - ASTHENIA [None]
  - BALANCE DISORDER [None]
  - DIAPHRAGM MUSCLE WEAKNESS [None]
  - GAIT DISTURBANCE [None]
  - HYPOXIA [None]
  - MUSCULAR WEAKNESS [None]
  - VENTRICULAR HYPERTROPHY [None]
